FAERS Safety Report 4459019-7 (Version None)
Quarter: 2004Q3

REPORT INFORMATION
  Report Type: 
  Country: None (occurrence: None)
  Receive Date: 20040920
  Receipt Date: 20040920
  Transmission Date: 20050211
  Serious: No
  Sender: FDA-Public Use
  Company Number: None

PATIENT
  Age: 80 Year
  Sex: Female

DRUGS (1)
  1. PHENYTOIN [Suspect]
     Indication: CONVULSION
     Dosage: 3 CAPS PO QD
     Route: 048
     Dates: start: 20031021, end: 20040806

REACTIONS (3)
  - CONFUSIONAL STATE [None]
  - MALAISE [None]
  - TARDIVE DYSKINESIA [None]
